FAERS Safety Report 23722924 (Version 2)
Quarter: 2025Q3

REPORT INFORMATION
  Report Type: Report from Study
  Country: CA (occurrence: CA)
  Receive Date: 20240409
  Receipt Date: 20250723
  Transmission Date: 20251020
  Serious: Yes (Hospitalization, Other)
  Sender: GLAXOSMITHKLINE
  Company Number: CA-GLAXOSMITHKLINE-CA2024042038

PATIENT
  Sex: Female

DRUGS (1)
  1. MEPOLIZUMAB [Suspect]
     Active Substance: MEPOLIZUMAB
     Indication: Asthma
     Dosage: 100 MG, Q4W

REACTIONS (3)
  - Pneumonia bacterial [Unknown]
  - Arthropod bite [Unknown]
  - Asthma [Unknown]
